FAERS Safety Report 9117751 (Version 1)
Quarter: 2013Q1

REPORT INFORMATION
  Report Type: Spontaneous
  Country: AU (occurrence: AU)
  Receive Date: 20130225
  Receipt Date: 20130225
  Transmission Date: 20140127
  Serious: Yes (Hospitalization)
  Sender: FDA-Public Use
  Company Number: AU-009507513-1302AUS008966

PATIENT
  Age: 55 Year
  Sex: Female
  Weight: 75 kg

DRUGS (6)
  1. TEMODAL [Suspect]
     Dosage: 150 MG, QD
     Route: 048
     Dates: start: 20101130
  2. TEMODAL [Suspect]
     Dosage: 180 MG, DAY 1 DAND 5
     Route: 048
  3. DEXAMETHASONE [Suspect]
     Route: 048
  4. CLONAZEPAM [Concomitant]
  5. EPILIM [Concomitant]
  6. KEPPRA [Concomitant]

REACTIONS (3)
  - Mania [Recovered/Resolved]
  - Thrombocytopenia [Recovered/Resolved]
  - Neutropenia [Recovered/Resolved]
